FAERS Safety Report 7916572-6 (Version None)
Quarter: 2011Q4

REPORT INFORMATION
  Report Type: 
  Country: None (occurrence: None)
  Receive Date: 20111114
  Receipt Date: 20111031
  Transmission Date: 20120403
  Serious: Yes (Hospitalization, Other)
  Sender: FDA-Public Use
  Company Number: 2011P1009466

PATIENT
  Age: 53 Year
  Sex: Female
  Weight: 73.9363 kg

DRUGS (12)
  1. PRIMIDONE [Concomitant]
  2. TRILEPTAL [Concomitant]
  3. NEXIUM [Concomitant]
  4. LEXAPRO [Concomitant]
  5. SYNTHROID [Concomitant]
  6. REQUIP [Concomitant]
  7. NEURONTIN [Concomitant]
  8. FENTANYL CITRATE [Suspect]
     Indication: PAIN
     Dosage: 1 PATCH;Q72H;TDER
     Route: 062
  9. CRESTOR [Concomitant]
  10. TEMOVATE 0.05% [Concomitant]
  11. SOMA [Concomitant]
  12. AMITRIPTYLINE HCL [Concomitant]

REACTIONS (8)
  - REFUSAL OF TREATMENT BY PATIENT [None]
  - AMNESIA [None]
  - DERMATITIS CONTACT [None]
  - DEVICE LEAKAGE [None]
  - CHEMICAL INJURY [None]
  - GASTRIC ULCER PERFORATION [None]
  - APPLICATION SITE VESICLES [None]
  - GASTROENTERITIS [None]
